FAERS Safety Report 13896305 (Version 1)
Quarter: 2017Q3

REPORT INFORMATION
  Report Type: Spontaneous
  Country: US (occurrence: US)
  Receive Date: 20170823
  Receipt Date: 20170823
  Transmission Date: 20171127
  Serious: No
  Sender: FDA-Public Use
  Company Number: US-SWEDISH ORPHAN INTERNATIONAL AB-2016US0903

PATIENT
  Age: 41 Year
  Sex: Male
  Weight: 91.25 kg

DRUGS (3)
  1. KINERET [Suspect]
     Active Substance: ANAKINRA
     Indication: PERICARDITIS
     Route: 058
     Dates: start: 20161017, end: 20161027
  2. INDOMETACIN [Concomitant]
     Active Substance: INDOMETHACIN
     Indication: PERICARDITIS
     Route: 048
  3. COLCHICINE. [Concomitant]
     Active Substance: COLCHICINE
     Indication: PERICARDITIS
     Route: 048

REACTIONS (1)
  - Injection site pruritus [Recovering/Resolving]

NARRATIVE: CASE EVENT DATE: 20161026
